FAERS Safety Report 16253777 (Version 3)
Quarter: 2019Q4

REPORT INFORMATION
  Report Type: Report from Study
  Country: US (occurrence: US)
  Receive Date: 20190430
  Receipt Date: 20191021
  Transmission Date: 20200122
  Serious: Yes (Other)
  Sender: FDA-Public Use
  Company Number: US-ROCHE-2308426

PATIENT
  Age: 68 Year
  Sex: Male
  Weight: 114.1 kg

DRUGS (12)
  1. ASPIRIN [ACETYLSALICYLIC ACID] [Concomitant]
     Active Substance: ASPIRIN
     Route: 048
  2. AMPICILLIN TRIHYDRATE. [Concomitant]
     Active Substance: AMPICILLIN TRIHYDRATE
     Route: 048
     Dates: start: 20180328
  3. PROSCAR [Concomitant]
     Active Substance: FINASTERIDE
     Dosage: 1 TABLET
     Route: 048
  4. LENALIDOMIDE [Suspect]
     Active Substance: LENALIDOMIDE
     Indication: B-CELL LYMPHOMA
     Route: 048
     Dates: start: 20180905, end: 20190419
  5. REVLIMID [Concomitant]
     Active Substance: LENALIDOMIDE
     Route: 048
  6. OBINUTUZUMAB. [Suspect]
     Active Substance: OBINUTUZUMAB
     Indication: B-CELL LYMPHOMA
     Route: 042
     Dates: start: 20180905, end: 20190423
  7. ATORVASTATIN CALCIUM. [Concomitant]
     Active Substance: ATORVASTATIN CALCIUM
     Route: 048
  8. CLARITIN [Concomitant]
     Active Substance: LORATADINE
     Route: 048
  9. FISH OIL [Concomitant]
     Active Substance: FISH OIL
     Route: 048
  10. GABAPENTIN. [Concomitant]
     Active Substance: GABAPENTIN
     Route: 048
  11. COSAMIN ASU [Concomitant]
     Dosage: 116.7 MG-133.3 MG
     Route: 048
  12. VALSARTAN/HYDROCHLOROTHIAZIDE AHCL [Concomitant]
     Active Substance: HYDROCHLOROTHIAZIDE\VALSARTAN
     Route: 048

REACTIONS (1)
  - Bladder cancer [Recovered/Resolved]

NARRATIVE: CASE EVENT DATE: 20190423
